FAERS Safety Report 11535785 (Version 4)
Quarter: 2015Q4

REPORT INFORMATION
  Report Type: Report from Study
  Country: CN (occurrence: CN)
  Receive Date: 20150922
  Receipt Date: 20151002
  Transmission Date: 20160304
  Serious: Yes (Other)
  Sender: FDA-Public Use
  Company Number: PHHY2015CN093350

PATIENT
  Age: 53 Year
  Sex: Female

DRUGS (45)
  1. RIBOFLAVIN SODIUM PHOSPHATE [Concomitant]
     Indication: VITAMIN SUPPLEMENTATION
     Dosage: 60 MG, QD
     Route: 042
     Dates: start: 20150701, end: 20150710
  2. LANSOPRAZOLE. [Concomitant]
     Active Substance: LANSOPRAZOLE
     Indication: PROPHYLAXIS
     Dosage: 60 MG, BID
     Route: 042
     Dates: start: 20150701, end: 20150708
  3. ESOMEPRAZOLE MAGNESIUM. [Concomitant]
     Active Substance: ESOMEPRAZOLE MAGNESIUM
     Indication: PROPHYLAXIS
     Dosage: 120 MG, QD
     Route: 042
     Dates: start: 20150709, end: 20150709
  4. PREDNISONE. [Concomitant]
     Active Substance: PREDNISONE
     Indication: PRODUCT USED FOR UNKNOWN INDICATION
     Dosage: 50 MG, QD
     Route: 065
     Dates: start: 20150702, end: 20150703
  5. FEBUXOSTAT. [Concomitant]
     Active Substance: FEBUXOSTAT
     Indication: BLOOD URIC ACID INCREASED
     Dosage: 40 MG, QD
     Route: 048
     Dates: start: 20150703, end: 20150710
  6. GLUTATHIONE [Concomitant]
     Active Substance: GLUTATHIONE
     Indication: PROPHYLAXIS
     Dosage: 1.8 G, QD
     Route: 042
     Dates: start: 20150701, end: 20150708
  7. NITROPRUSSIDE [Concomitant]
     Active Substance: NITROPRUSSIDE
     Indication: BLOOD PRESSURE INCREASED
     Dosage: 50 MG, QD
     Route: 042
     Dates: start: 20150702, end: 20150703
  8. INSULIN [Concomitant]
     Active Substance: INSULIN NOS
     Dosage: 100 U, QD
     Route: 042
     Dates: start: 20150710, end: 20150710
  9. TACROLIMUS. [Suspect]
     Active Substance: TACROLIMUS
     Dosage: 1.5 MG, QD
     Route: 065
     Dates: start: 20150706, end: 20150710
  10. METHIONINE [Concomitant]
     Active Substance: METHIONINE
     Indication: PROPHYLAXIS
     Dosage: 220 MG, QD
     Route: 042
     Dates: start: 20150701, end: 20150708
  11. LIGNOCAINE//LIDOCAINE [Concomitant]
     Dosage: 10 ML, BID
     Route: 042
     Dates: start: 20150710, end: 20150710
  12. NOREPINEPHRINE [Concomitant]
     Active Substance: NOREPINEPHRINE\NOREPINEPHRINE BITARTRATE
     Indication: PROPHYLAXIS
     Dosage: 2 MG, QD
     Route: 042
     Dates: start: 20150710, end: 20150710
  13. CEFOPERAZONE [Concomitant]
     Active Substance: CEFOPERAZONE
     Dosage: 5 G, QD
     Route: 048
     Dates: start: 20150708, end: 20150710
  14. MYFORTIC [Suspect]
     Active Substance: MYCOPHENOLATE SODIUM
     Dosage: 720 MG, QD
     Route: 065
     Dates: start: 20150708, end: 20150709
  15. LANSOPRAZOLE. [Concomitant]
     Active Substance: LANSOPRAZOLE
     Dosage: 60 MG, QD
     Route: 042
     Dates: start: 20150708, end: 20150709
  16. POTASSIUM CHLORIDE. [Concomitant]
     Active Substance: POTASSIUM CHLORIDE
     Indication: MINERAL SUPPLEMENTATION
     Dosage: 2 G, QD
     Route: 048
     Dates: start: 20150705, end: 20150710
  17. CEFOPERAZONE [Concomitant]
     Active Substance: CEFOPERAZONE
     Indication: INFECTION
     Dosage: 5 G, BID
     Route: 048
     Dates: start: 20150701, end: 20150708
  18. NICARDIPINE [Concomitant]
     Active Substance: NICARDIPINE
     Indication: BLOOD PRESSURE INCREASED
     Dosage: 40 MG, BID
     Route: 048
     Dates: start: 20150702, end: 20150710
  19. IPRATROPIUM BROMIDE. [Concomitant]
     Active Substance: IPRATROPIUM BROMIDE
     Indication: BRONCHOSPASM
     Dosage: 4 ML, TID
     Route: 055
     Dates: start: 20150702, end: 20150710
  20. PREDNISONE. [Concomitant]
     Active Substance: PREDNISONE
     Dosage: 20 MG, QD
     Route: 065
     Dates: start: 20150705, end: 20150706
  21. BASILIXIMAB [Suspect]
     Active Substance: BASILIXIMAB
     Dosage: 20 MG, QD
     Route: 065
     Dates: start: 20150704, end: 20150704
  22. ALANYL GLUTAMINE [Concomitant]
     Active Substance: ALANYL GLUTAMINE
     Indication: NUTRITIONAL SUPPLEMENTATION
     Dosage: 20 G, QD
     Route: 042
     Dates: start: 20150701, end: 20150707
  23. ALANYL GLUTAMINE [Concomitant]
     Active Substance: ALANYL GLUTAMINE
     Dosage: 20 G, QD
     Route: 042
     Dates: start: 20150709, end: 20150710
  24. SODIUM PHOSPHATE [Concomitant]
     Active Substance: SODIUM PHOSPHATE
     Indication: GASTRIC LAVAGE
     Dosage: 130 ML, QD
     Route: 065
     Dates: start: 20150703, end: 20150703
  25. TORASEMIDE [Concomitant]
     Active Substance: TORSEMIDE
     Indication: DIURETIC THERAPY
     Dosage: 20 MG, QD
     Route: 042
     Dates: start: 20150704, end: 20150704
  26. ISOPRENALINE [Concomitant]
     Active Substance: ISOPROTERENOL HYDROCHLORIDE
     Indication: PROPHYLAXIS
     Dosage: 1 MG, QD
     Route: 042
     Dates: start: 20150710, end: 20150710
  27. FAT EMULSION NOS [Concomitant]
     Active Substance: EGG PHOSPHOLIPIDS\SAFFLOWER OIL\SOYBEAN OIL
     Indication: NUTRITIONAL SUPPLEMENTATION
     Dosage: 250 ML, QD
     Route: 042
     Dates: start: 20150701, end: 20150708
  28. OCTREOTIDE ACETATE. [Concomitant]
     Active Substance: OCTREOTIDE ACETATE
     Indication: HAEMATEMESIS
     Dosage: 0.6 MG, QD
     Route: 042
     Dates: start: 20150709, end: 20150709
  29. AMBROXOL HYDROCHLORIDE [Concomitant]
     Active Substance: AMBROXOL HYDROCHLORIDE
     Indication: PRODUCTIVE COUGH
     Dosage: 30 MG, QD
     Route: 055
     Dates: start: 20150702, end: 20150710
  30. INSULIN [Concomitant]
     Active Substance: INSULIN NOS
     Indication: BLOOD GLUCOSE INCREASED
     Dosage: 20 U, QD
     Route: 042
     Dates: start: 20150703, end: 20150703
  31. PREDNISONE. [Concomitant]
     Active Substance: PREDNISONE
     Dosage: 40 MG, QD
     Route: 065
     Dates: start: 20150703, end: 20150704
  32. PREDNISONE. [Concomitant]
     Active Substance: PREDNISONE
     Dosage: 30 MG, QD
     Route: 065
     Dates: start: 20150704, end: 20150705
  33. PREDNISONE. [Concomitant]
     Active Substance: PREDNISONE
     Dosage: 10 MG, QD
     Route: 065
     Dates: start: 20150706, end: 20150709
  34. MYFORTIC [Suspect]
     Active Substance: MYCOPHENOLATE SODIUM
     Indication: RENAL TRANSPLANT
     Dosage: 1440 MG, QD
     Route: 065
     Dates: start: 20150701, end: 20150708
  35. TACROLIMUS. [Suspect]
     Active Substance: TACROLIMUS
     Dosage: 2 MG, QD
     Route: 065
     Dates: start: 20150706, end: 20150710
  36. DOPAMINE [Concomitant]
     Active Substance: DOPAMINE\DOPAMINE HYDROCHLORIDE
     Indication: PROPHYLAXIS
     Dosage: 200 MG, QD
     Route: 042
     Dates: start: 20150710, end: 20150710
  37. VITAMIN B [Concomitant]
     Active Substance: VITAMIN B
     Indication: PROPHYLAXIS
     Dosage: 220 MG, QD
     Route: 042
     Dates: start: 20150701, end: 20150708
  38. ADRENALINE [Concomitant]
     Active Substance: EPINEPHRINE
     Indication: PROPHYLAXIS
     Dosage: 1 MG, QD
     Route: 042
     Dates: start: 20150710, end: 20150710
  39. FAT EMULSION NOS [Concomitant]
     Active Substance: EGG PHOSPHOLIPIDS\SAFFLOWER OIL\SOYBEAN OIL
     Dosage: 500 ML, QD
     Route: 042
     Dates: start: 20150709, end: 20150710
  40. MYFORTIC [Suspect]
     Active Substance: MYCOPHENOLATE SODIUM
     Dosage: 360 MG, QD
     Route: 065
     Dates: start: 20150709, end: 20150710
  41. BASILIXIMAB [Suspect]
     Active Substance: BASILIXIMAB
     Indication: PRODUCT USED FOR UNKNOWN INDICATION
     Dosage: 20 MG, QD
     Route: 065
     Dates: start: 20150630, end: 20150630
  42. TACROLIMUS. [Suspect]
     Active Substance: TACROLIMUS
     Indication: PRODUCT USED FOR UNKNOWN INDICATION
     Dosage: 6 MG, QD (FOR THE DURATION OF 5 DAYS)
     Route: 065
     Dates: start: 20150702, end: 20150706
  43. DOBUTAMINE [Concomitant]
     Active Substance: DOBUTAMINE\DOBUTAMINE HYDROCHLORIDE
     Indication: PROPHYLAXIS
     Dosage: 200 MG, QD
     Route: 042
     Dates: start: 20150710, end: 20150710
  44. LIGNOCAINE//LIDOCAINE [Concomitant]
     Indication: VASOSPASM
     Dosage: 10 ML, QD
     Route: 042
     Dates: start: 20150703, end: 20150703
  45. INSULIN [Concomitant]
     Active Substance: INSULIN NOS
     Dosage: 4 U, QD
     Route: 042
     Dates: start: 20150709, end: 20150710

REACTIONS (4)
  - Gastrointestinal haemorrhage [Unknown]
  - Lymphocyte count decreased [Unknown]
  - Restlessness [Unknown]
  - Blood urea increased [Unknown]

NARRATIVE: CASE EVENT DATE: 20150703
